FAERS Safety Report 14137648 (Version 1)
Quarter: 2017Q4

REPORT INFORMATION
  Report Type: Spontaneous
  Country: US (occurrence: US)
  Receive Date: 20171027
  Receipt Date: 20171027
  Transmission Date: 20180321
  Serious: Yes (Other)
  Sender: FDA-Public Use
  Company Number: US-SMITH AND NEPHEW, INC-2017SMT00556

PATIENT

DRUGS (2)
  1. SILVER ALGINATE DRESSING (DEVICE) [Suspect]
     Active Substance: DEVICE
     Indication: WOUND
     Dosage: UNK
     Route: 061
  2. COLLAGENASE SANTYL [Suspect]
     Active Substance: COLLAGENASE CLOSTRIDIUM HISTOLYTICUM
     Indication: WOUND
     Dosage: UNK
     Route: 061

REACTIONS (4)
  - Drug effect incomplete [Recovering/Resolving]
  - Wound necrosis [Recovering/Resolving]
  - Impaired healing [Recovering/Resolving]
  - Wound complication [Recovering/Resolving]
